FAERS Safety Report 6212905-X (Version None)
Quarter: 2009Q2

REPORT INFORMATION
  Report Type: 
  Country: None (occurrence: None)
  Receive Date: 20090603
  Receipt Date: 20090529
  Transmission Date: 20091009
  Serious: Yes (Hospitalization)
  Sender: FDA-Public Use
  Company Number: DE-ABBOTT-09P-062-0576516-00

PATIENT
  Age: 39 Year
  Sex: Male
  Weight: 100 kg

DRUGS (3)
  1. HUMIRA [Suspect]
     Indication: CROHN'S DISEASE
     Dosage: START WITH 80 MG
     Route: 058
     Dates: start: 20081204, end: 20090301
  2. BUDESONIDE [Concomitant]
     Indication: CROHN'S DISEASE
  3. CORTICOIDS [Concomitant]
     Indication: CROHN'S DISEASE
     Route: 065

REACTIONS (1)
  - ADVERSE EVENT [None]
